FAERS Safety Report 15160724 (Version 5)
Quarter: 2019Q4

REPORT INFORMATION
  Report Type: Report from Study
  Country: US (occurrence: US)
  Receive Date: 20180718
  Receipt Date: 20191219
  Transmission Date: 20200122
  Serious: No
  Sender: FDA-Public Use
  Company Number: PHEH2018US029042

PATIENT
  Sex: Female

DRUGS (3)
  1. AUBAGIO [Suspect]
     Active Substance: TERIFLUNOMIDE
     Indication: PRODUCT USED FOR UNKNOWN INDICATION
     Route: 065
  2. GILENYA [Suspect]
     Active Substance: FINGOLIMOD HYDROCHLORIDE
     Dosage: 0.5 MG, QD
     Route: 048
     Dates: start: 20180615
  3. GILENYA [Suspect]
     Active Substance: FINGOLIMOD HYDROCHLORIDE
     Indication: MULTIPLE SCLEROSIS
     Dosage: 0.5 MG, QD
     Route: 048
     Dates: start: 20180615

REACTIONS (9)
  - Neck pain [Unknown]
  - Lymphocyte count decreased [Unknown]
  - Memory impairment [Unknown]
  - Headache [Unknown]
  - Concomitant disease aggravated [Unknown]
  - Vision blurred [Unknown]
  - Visual impairment [Recovering/Resolving]
  - Herpes zoster [Unknown]
  - Back pain [Unknown]
